FAERS Safety Report 8193779-7 (Version None)
Quarter: 2012Q1

REPORT INFORMATION
  Report Type: 
  Country: None (occurrence: None)
  Receive Date: 20120308
  Receipt Date: 20120228
  Transmission Date: 20120608
  Serious: Yes (Hospitalization)
  Sender: FDA-Public Use
  Company Number: DE-BRISTOL-MYERS SQUIBB COMPANY-16402901

PATIENT
  Age: 63 Year
  Sex: Male
  Weight: 59 kg

DRUGS (10)
  1. CETUXIMAB [Suspect]
     Indication: HEAD AND NECK CANCER METASTATIC
     Dosage: RECENT INFUSION 19JAN12
     Route: 042
     Dates: start: 20110224
  2. RAMIPRIL [Concomitant]
     Indication: HYPERTENSION
     Route: 048
  3. METOPROLOL TARTRATE [Concomitant]
     Indication: HYPERTENSION
     Route: 048
  4. CLEMASTINE FUMARATE [Concomitant]
     Indication: ANTIALLERGIC THERAPY
     Dosage: 1DF=2 UNIT NOS
     Dates: start: 20110224, end: 20120119
  5. FLUOROURACIL [Suspect]
     Indication: HEAD AND NECK CANCER METASTATIC
     Dosage: RECENT INFUSION 15JAN12
     Route: 042
     Dates: start: 20110225
  6. CISPLATIN [Suspect]
     Indication: HEAD AND NECK CANCER METASTATIC
     Dosage: RECENT INFUSION 15JAN12
     Route: 042
     Dates: start: 20110225
  7. DEXAMETHASONE [Concomitant]
     Dosage: 1DF=8 UNIT NOS
     Dates: start: 20111201, end: 20120119
  8. HYDROCHLOROTHIAZIDE [Concomitant]
     Indication: HYPERTENSION
     Route: 048
  9. NEXIUM [Concomitant]
     Indication: GASTROINTESTINAL DISORDER
     Route: 048
  10. NEXIUM [Concomitant]
     Indication: ANTACID THERAPY
     Route: 048

REACTIONS (7)
  - BLOOD CREATININE INCREASED [None]
  - DYSPNOEA [None]
  - DIARRHOEA [None]
  - HAEMATOCRIT DECREASED [None]
  - SKIN TOXICITY [None]
  - GENERAL PHYSICAL HEALTH DETERIORATION [None]
  - HAEMOGLOBIN DECREASED [None]
